FAERS Safety Report 23561777 (Version 2)
Quarter: 2024Q2

REPORT INFORMATION
  Report Type: Spontaneous
  Country: FI (occurrence: FI)
  Receive Date: 20240225
  Receipt Date: 20240402
  Transmission Date: 20240716
  Serious: Yes (Death, Other)
  Sender: FDA-Public Use
  Company Number: FI-009507513-2402FIN007210

PATIENT
  Age: 80 Year
  Sex: Male

DRUGS (11)
  1. KEYTRUDA [Suspect]
     Active Substance: PEMBROLIZUMAB
     Indication: Oesophageal carcinoma
     Dosage: 200 MILLIGRAM, Q3W
     Dates: start: 20220926, end: 20220926
  2. KEYTRUDA [Suspect]
     Active Substance: PEMBROLIZUMAB
     Dosage: 200 MILLIGRAM, Q3W
     Dates: start: 20221024, end: 20221024
  3. FLUOROURACIL [Suspect]
     Active Substance: FLUOROURACIL
     Dosage: 641 MILLIGRAM
     Dates: start: 20220926, end: 20220926
  4. FLUOROURACIL [Suspect]
     Active Substance: FLUOROURACIL
     Dosage: 641 MILLIGRAM
     Dates: start: 20221024, end: 20221024
  5. ERDOSTEINE [Concomitant]
     Active Substance: ERDOSTEINE
     Dosage: 300 MILLIGRAM
  6. PANTOPRAZOLE [Concomitant]
     Active Substance: PANTOPRAZOLE
     Dosage: 40 MILLIGRAM
  7. METOPROLOL [Concomitant]
     Active Substance: METOPROLOL
     Dosage: 23.75 MILLIGRAM
  8. PANADOL [Concomitant]
     Active Substance: ACETAMINOPHEN
     Dosage: 1 GRAM
  9. SIMVASTATIN [Concomitant]
     Active Substance: SIMVASTATIN
     Dosage: 10 MILLIGRAM
  10. MORPHINE SULFATE [Concomitant]
     Active Substance: MORPHINE SULFATE
     Dosage: 2 MILLIGRAM
  11. ATROVENT [Concomitant]
     Active Substance: IPRATROPIUM BROMIDE

REACTIONS (6)
  - Systemic infection [Fatal]
  - Immune-mediated lung disease [Recovered/Resolved]
  - Immune-mediated lung disease [Fatal]
  - Malignant neoplasm progression [Fatal]
  - Pneumocystis jirovecii pneumonia [Fatal]
  - Inappropriate schedule of product administration [Unknown]

NARRATIVE: CASE EVENT DATE: 20221001
